FAERS Safety Report 8622140-3 (Version None)
Quarter: 2012Q3

REPORT INFORMATION
  Report Type: 
  Country: None (occurrence: None)
  Receive Date: 20120826
  Receipt Date: 20120820
  Transmission Date: 20120928
  Serious: No
  Sender: FDA-Public Use
  Company Number: US-B.I. PHARMACEUTICALS,INC./RIDGEFIELD-2012-BP-20247BP

PATIENT
  Sex: Male

DRUGS (8)
  1. CLARITIN [Concomitant]
     Route: 048
  2. GLYBURIDE [Concomitant]
     Indication: DIABETES MELLITUS
  3. SPIRIVA [Suspect]
     Indication: CHRONIC OBSTRUCTIVE PULMONARY DISEASE
     Dosage: 18 MCG
     Route: 055
  4. WATER PILL [Concomitant]
     Route: 048
  5. METFORMIN HCL [Concomitant]
     Indication: DIABETES MELLITUS
     Dosage: 1700 MG
  6. BUPROPION HCL [Concomitant]
     Route: 048
  7. SPIRIVA [Suspect]
     Route: 048
     Dates: start: 20120820, end: 20120820
  8. SIMVASTATIN [Concomitant]
     Indication: BLOOD CHOLESTEROL INCREASED
     Route: 048

REACTIONS (1)
  - INCORRECT ROUTE OF DRUG ADMINISTRATION [None]
